FAERS Safety Report 15391472 (Version 1)
Quarter: 2018Q3

REPORT INFORMATION
  Report Type: Spontaneous
  Country: US (occurrence: US)
  Receive Date: 20180910
  Receipt Date: 20180910
  Transmission Date: 20181010
  Serious: No
  Sender: FDA-Public Use
  Company Number: None

PATIENT
  Age: 69 Year
  Sex: Male
  Weight: 128.09 kg

DRUGS (1)
  1. INSULIN [Suspect]
     Active Substance: INSULIN NOS
     Indication: DIABETES MELLITUS
     Dosage: ?          OTHER DOSE:90  UNITS;?
     Route: 058
     Dates: start: 20180418, end: 20180509

REACTIONS (1)
  - Joint swelling [None]

NARRATIVE: CASE EVENT DATE: 20180509
